FAERS Safety Report 5669074-4 (Version None)
Quarter: 2008Q1

REPORT INFORMATION
  Report Type: 
  Country: None (occurrence: None)
  Receive Date: 20080313
  Receipt Date: 20080313
  Transmission Date: 20080703
  Serious: Yes (Other)
  Sender: FDA-Public Use
  Company Number: None

PATIENT
  Sex: Female
  Weight: 45.3597 kg

DRUGS (3)
  1. NOLVADEX [Suspect]
     Indication: BREAST CANCER
     Dosage: ONE DAILY
     Dates: start: 19840601, end: 20020101
  2. NOLVADEX [Suspect]
     Indication: MASTECTOMY
     Dosage: ONE DAILY
     Dates: start: 19840601, end: 20020101
  3. TAMOXIFEN 10 MG ASTRAZENECA [Suspect]

REACTIONS (2)
  - CATARACT [None]
  - CEREBROVASCULAR ACCIDENT [None]
